FAERS Safety Report 9485361 (Version 1)
Quarter: 2013Q3

REPORT INFORMATION
  Report Type: Spontaneous
  Country: US (occurrence: US)
  Receive Date: 20130828
  Receipt Date: 20130828
  Transmission Date: 20140515
  Serious: No
  Sender: FDA-Public Use
  Company Number: US-TEVA-428492USA

PATIENT
  Sex: 0

DRUGS (1)
  1. AZILECT [Suspect]
     Dosage: 0.5MG/1
     Route: 048

REACTIONS (1)
  - Surgery [Unknown]
